FAERS Safety Report 20183264 (Version 1)
Quarter: 2021Q4

REPORT INFORMATION
  Report Type: Spontaneous
  Country: US (occurrence: None)
  Receive Date: 20211214
  Receipt Date: 20211214
  Transmission Date: 20220303
  Serious: No
  Sender: FDA-Public Use
  Company Number: None

PATIENT
  Age: 19 Year
  Sex: Male
  Weight: 95 kg

DRUGS (1)
  1. BAMLANIVIMAB\ETESEVIMAB [Suspect]
     Active Substance: BAMLANIVIMAB\ETESEVIMAB
     Indication: COVID-19
     Dates: start: 20211207, end: 20211207

REACTIONS (6)
  - Dyspnoea [None]
  - Chest discomfort [None]
  - Paraesthesia [None]
  - Abdominal discomfort [None]
  - Chest discomfort [None]
  - Feeling cold [None]

NARRATIVE: CASE EVENT DATE: 20211207
